FAERS Safety Report 8050279-2 (Version None)
Quarter: 2012Q1

REPORT INFORMATION
  Report Type: 
  Country: None (occurrence: None)
  Receive Date: 20120117
  Receipt Date: 20120110
  Transmission Date: 20120608
  Serious: Yes (Other)
  Sender: FDA-Public Use
  Company Number: US-ALEXION PHARMACEUTICALS INC.-A201101248

PATIENT
  Sex: Male

DRUGS (1)
  1. SOLIRIS [Suspect]
     Indication: PAROXYSMAL NOCTURNAL HAEMOGLOBINURIA
     Dosage: UNK, EVERY TWELVE DAYS
     Route: 042
     Dates: start: 20110801

REACTIONS (5)
  - PNEUMONIA [None]
  - PYREXIA [None]
  - NODULE [None]
  - HAEMOGLOBIN DECREASED [None]
  - BLOOD IRON INCREASED [None]
